FAERS Safety Report 8406086 (Version 2)
Quarter: 2012Q4

REPORT INFORMATION
  Report Type: 
  Country: CA (occurrence: CA)
  Receive Date: 20120215
  Receipt Date: 20120910
  Transmission Date: 20130627
  Serious: Yes (Other)
  Sender: FDA-Public Use
  Company Number: CA-JNJFOC-20120107860

PATIENT
  Age: 32 Year
  Sex: Female
  Weight: 56.8 kg

DRUGS (9)
  1. REMICADE [Suspect]
     Indication: CROHN^S DISEASE
     Route: 042
     Dates: start: 201202
  2. REMICADE [Suspect]
     Indication: CROHN^S DISEASE
     Route: 042
     Dates: start: 20111031
  3. REMICADE [Suspect]
     Indication: CROHN^S DISEASE
     Route: 042
  4. BENADRYL [Suspect]
     Route: 065
  5. BENADRYL [Suspect]
     Indication: PREMEDICATION
     Route: 065
     Dates: start: 20111031
  6. REACTINE [Concomitant]
     Route: 065
  7. SYNTHROID [Concomitant]
     Route: 065
  8. SOLUCORTEF [Concomitant]
     Route: 065
  9. MARVELON [Concomitant]
     Route: 065

REACTIONS (4)
  - Paraesthesia [Not Recovered/Not Resolved]
  - Pain [Not Recovered/Not Resolved]
  - Infusion related reaction [Not Recovered/Not Resolved]
  - Hypoaesthesia [Unknown]
